FAERS Safety Report 7545337-2 (Version None)
Quarter: 2011Q2

REPORT INFORMATION
  Report Type: 
  Country: None (occurrence: None)
  Receive Date: 20110614
  Receipt Date: 20110606
  Transmission Date: 20111010
  Serious: Yes (Death, Hospitalization)
  Sender: FDA-Public Use
  Company Number: DE-ELI_LILLY_AND_COMPANY-DE201105006682

PATIENT
  Sex: Male

DRUGS (8)
  1. SODIUM PICOSULFATE [Concomitant]
  2. BEVACIZUMAB [Suspect]
     Dosage: 200 MG, EVERY 3 WEEKS
     Route: 042
     Dates: start: 20110407
  3. MORPHINE [Concomitant]
  4. TILIDINE [Concomitant]
  5. PEMETREXED [Suspect]
     Indication: NON-SMALL CELL LUNG CANCER
     Dosage: 810 MG, EVERY 3 WEEKS
     Route: 042
     Dates: start: 20101008, end: 20110407
  6. BEVACIZUMAB [Suspect]
     Indication: NON-SMALL CELL LUNG CANCER
     Dosage: 440 MG, EVERY 3 WEEKS
     Route: 042
     Dates: start: 20101008, end: 20110407
  7. PEMETREXED [Suspect]
     Dosage: 350 MG, UNK
     Route: 042
     Dates: start: 20110407
  8. METOCLOPRAMIDE [Concomitant]

REACTIONS (7)
  - GENERAL PHYSICAL HEALTH DETERIORATION [None]
  - HYPOPHAGIA [None]
  - MUCOSAL INFLAMMATION [None]
  - DIARRHOEA [None]
  - HAEMATOTOXICITY [None]
  - DEHYDRATION [None]
  - FLUID INTAKE REDUCED [None]
